FAERS Safety Report 26130788 (Version 1)
Quarter: 2025Q4

REPORT INFORMATION
  Report Type: Spontaneous
  Country: US (occurrence: US)
  Receive Date: 20251208
  Receipt Date: 20251208
  Transmission Date: 20260117
  Serious: Yes (Hospitalization)
  Sender: MYLAN
  Company Number: US-MYLANLABS-2025M1104101

PATIENT
  Age: 44 Year
  Sex: Female

DRUGS (12)
  1. METFORMIN [Suspect]
     Active Substance: METFORMIN HYDROCHLORIDE
     Indication: Type 2 diabetes mellitus
     Dosage: UNK
  2. METFORMIN [Suspect]
     Active Substance: METFORMIN HYDROCHLORIDE
     Indication: Insulin autoimmune syndrome
     Dosage: UNK
     Route: 065
  3. METFORMIN [Suspect]
     Active Substance: METFORMIN HYDROCHLORIDE
     Dosage: UNK
     Route: 065
  4. METFORMIN [Suspect]
     Active Substance: METFORMIN HYDROCHLORIDE
     Dosage: UNK
  5. HUMALOG [Suspect]
     Active Substance: INSULIN LISPRO
     Indication: Type 2 diabetes mellitus
     Dosage: 16 INTERNATIONAL UNIT, BEFORE EACH MEAL
  6. HUMALOG [Suspect]
     Active Substance: INSULIN LISPRO
     Indication: Insulin autoimmune syndrome
     Dosage: 16 INTERNATIONAL UNIT, BEFORE EACH MEAL
     Route: 065
  7. HUMALOG [Suspect]
     Active Substance: INSULIN LISPRO
     Dosage: 16 INTERNATIONAL UNIT, BEFORE EACH MEAL
     Route: 065
  8. HUMALOG [Suspect]
     Active Substance: INSULIN LISPRO
     Dosage: 16 INTERNATIONAL UNIT, BEFORE EACH MEAL
  9. LEVEMIR [Suspect]
     Active Substance: INSULIN DETEMIR
     Indication: Type 2 diabetes mellitus
     Dosage: 39 INTERNATIONAL UNIT, HS (AT NIGHT)
  10. LEVEMIR [Suspect]
     Active Substance: INSULIN DETEMIR
     Indication: Insulin autoimmune syndrome
     Dosage: 39 INTERNATIONAL UNIT, HS (AT NIGHT)
     Route: 065
  11. LEVEMIR [Suspect]
     Active Substance: INSULIN DETEMIR
     Dosage: 39 INTERNATIONAL UNIT, HS (AT NIGHT)
     Route: 065
  12. LEVEMIR [Suspect]
     Active Substance: INSULIN DETEMIR
     Dosage: 39 INTERNATIONAL UNIT, HS (AT NIGHT)

REACTIONS (1)
  - Drug ineffective [Unknown]
